FAERS Safety Report 5582204-8 (Version None)
Quarter: 2008Q1

REPORT INFORMATION
  Report Type: 
  Country: None (occurrence: None)
  Receive Date: 20080104
  Receipt Date: 20071210
  Transmission Date: 20080703
  Serious: Yes (Other)
  Sender: FDA-Public Use
  Company Number: FR-BRISTOL-MYERS SQUIBB COMPANY-14029466

PATIENT
  Age: 65 Year
  Sex: Female

DRUGS (13)
  1. ENDOXAN [Suspect]
     Indication: SCLERODERMA
     Dosage: 9TH COURSE GIVEN ON 24APR07,10TH ON 22MAY07,12TH ON 17JUL07,AND 1GM ON 29OCT07(LOT#7E565)
     Route: 042
     Dates: start: 20060724, end: 20070101
  2. UROMITEXAN [Suspect]
     Indication: SCLERODERMA
     Dosage: ALSO GIVEN AS 300MG IV FROM 24-JUL-07-2007  AND  300 MG ON 29OCT2007(LOT:6L103F)
     Route: 048
     Dates: start: 20060724, end: 20070101
  3. ZOPHREN [Suspect]
     Indication: SCLERODERMA
     Route: 042
     Dates: start: 20060724, end: 20070101
  4. RANIPLEX [Concomitant]
  5. PREVISCAN [Concomitant]
  6. CONTRAMAL [Concomitant]
     Dosage: CONTRAMAL 200 SLOW RELEASE 2 DF DAILY. CONTRAMAL 100 1DF PRN.
  7. DAFALGAN [Concomitant]
  8. OROCAL D3 [Concomitant]
  9. XATRAL [Concomitant]
     Dates: start: 20070111
  10. BONIVA [Concomitant]
     Dates: start: 20070301
  11. TAHOR [Concomitant]
  12. VERAPAMIL [Concomitant]
     Dosage: 120 MG
  13. NEURONTIN [Concomitant]

REACTIONS (5)
  - ASTHENIA [None]
  - MYALGIA [None]
  - NEUROPATHY PERIPHERAL [None]
  - PYREXIA [None]
  - VOMITING [None]
